FAERS Safety Report 6348301-4 (Version None)
Quarter: 2009Q3

REPORT INFORMATION
  Report Type: 
  Country: None (occurrence: None)
  Receive Date: 20090908
  Receipt Date: 20090821
  Transmission Date: 20100115
  Serious: No
  Sender: FDA-Public Use
  Company Number: APP200900539

PATIENT
  Age: 48 Year
  Sex: Male
  Weight: 102.0593 kg

DRUGS (1)
  1. NAROPIN [Suspect]
     Indication: OSTEOARTHRITIS
     Dosage: 9 ML, KNEE INJECTION
     Dates: start: 20090813, end: 20090813

REACTIONS (3)
  - INFECTION [None]
  - PAIN [None]
  - SWELLING [None]
